FAERS Safety Report 7826873-8 (Version None)
Quarter: 2011Q4

REPORT INFORMATION
  Report Type: 
  Country: None (occurrence: None)
  Receive Date: 20111020
  Receipt Date: 20111019
  Transmission Date: 20120403
  Serious: Yes (Death)
  Sender: FDA-Public Use
  Company Number: US-ROXANE LABORATORIES, INC.-2011-RO-01507RO

PATIENT
  Sex: Female

DRUGS (1)
  1. METHADONE HCL [Suspect]

REACTIONS (1)
  - DEATH [None]
